FAERS Safety Report 20052533 (Version 1)
Quarter: 2021Q4

REPORT INFORMATION
  Report Type: Other
  Country: CO (occurrence: CO)
  Receive Date: 20211110
  Receipt Date: 20211110
  Transmission Date: 20220303
  Serious: Yes (Other)
  Sender: FDA-Public Use
  Company Number: CO-002147023-NVSC2021CO202875

PATIENT
  Sex: Female
  Weight: 65 kg

DRUGS (6)
  1. XOLAIR [Suspect]
     Active Substance: OMALIZUMAB
     Indication: Asthma
     Dosage: 150 MG, QMO (STOPPED 2 YEARS AGO)
     Route: 058
     Dates: start: 2010
  2. XOLAIR [Suspect]
     Active Substance: OMALIZUMAB
     Dosage: 300 MG, QMO (STARTED 2 YEARS AGO)
     Route: 058
  3. ALBUTEROL [Concomitant]
     Active Substance: ALBUTEROL
     Indication: Asthma
     Dosage: UNK, PRN (STARTED 24 YEARS AGO)
     Route: 048
  4. AEROVIAL (COLOMBIA) [Concomitant]
     Indication: Asthma
     Dosage: UNK, Q8H (STARTED 7 YEARS AGO)
     Route: 048
  5. TIOTROPIUM BROMIDE [Concomitant]
     Active Substance: TIOTROPIUM BROMIDE
     Indication: Asthma
     Dosage: UNK, Q24H (STARTED 8 YEARS AGO)
     Route: 048
  6. MONTELUKAST [Concomitant]
     Active Substance: MONTELUKAST SODIUM
     Indication: Asthma
     Dosage: 10 MG, Q24H (STARTED 12 YEARS AGO)
     Route: 048

REACTIONS (8)
  - Asthmatic crisis [Recovered/Resolved]
  - Asphyxia [Unknown]
  - Diabetes mellitus [Unknown]
  - Abdominal pain upper [Unknown]
  - Back pain [Unknown]
  - Hypertension [Unknown]
  - Pain [Unknown]
  - Product administration interrupted [Unknown]

NARRATIVE: CASE EVENT DATE: 20140101
